FAERS Safety Report 6616474-1 (Version None)
Quarter: 2010Q1

REPORT INFORMATION
  Report Type: 
  Country: None (occurrence: None)
  Receive Date: 20100305
  Receipt Date: 20100222
  Transmission Date: 20100710
  Serious: Yes (Hospitalization)
  Sender: FDA-Public Use
  Company Number: SE-PFIZER INC-2010022406

PATIENT
  Age: 63 Year
  Sex: Male

DRUGS (11)
  1. PREDNISOLON [Suspect]
     Indication: LYMPHOCYTIC LEUKAEMIA
     Dosage: UNK
     Route: 048
     Dates: start: 20070301, end: 20070716
  2. VINCRISTINE [Suspect]
     Indication: LYMPHOCYTIC LEUKAEMIA
     Dosage: UNK
     Route: 042
     Dates: start: 20070301, end: 20070716
  3. CYCLOPHOSPHAMIDE ^ORION^ [Suspect]
     Indication: LYMPHOCYTIC LEUKAEMIA
     Dosage: UNK
     Route: 042
     Dates: start: 20070301, end: 20070716
  4. MABTHERA [Suspect]
     Indication: LYMPHOCYTIC LEUKAEMIA
     Dosage: UNK
     Route: 042
     Dates: start: 20070301, end: 20070716
  5. KALCIPOS-D [Concomitant]
     Dosage: UNK
  6. PAMOL [Concomitant]
     Dosage: UNK
  7. ACETYLCYSTEIN AL [Concomitant]
     Dosage: UNK
  8. OMEPRAZOL [Concomitant]
     Dosage: UNK
  9. METOPROLOL [Concomitant]
     Dosage: UNK
  10. FELODIPINE [Concomitant]
     Dosage: UNK
  11. TRYPTIZOL [Concomitant]
     Dosage: UNK

REACTIONS (1)
  - POLYNEUROPATHY [None]
